FAERS Safety Report 6983457 (Version 2)
Quarter: 2014Q1

REPORT INFORMATION
  Report Type: Spontaneous
  Country: US (occurrence: US)
  Receive Date: 20090430
  Receipt Date: 20140110
  Transmission Date: 20141002
  Serious: No
  Sender: FDA-Public Use
  Company Number: US-ASTRAZENECA-2009UW02404

PATIENT
  Age: 18705 Day
  Sex: Female

DRUGS (1)
  1. NEXIUM [Suspect]
     Route: 065

REACTIONS (1)
  - Drug dose omission [Unknown]
